FAERS Safety Report 9972599 (Version 1)
Quarter: 2014Q1

REPORT INFORMATION
  Report Type: Report from Study
  Country: US (occurrence: US)
  Receive Date: 20140306
  Receipt Date: 20140306
  Transmission Date: 20141002
  Serious: No
  Sender: FDA-Public Use
  Company Number: US-ABBVIE-13P-163-1154257-00

PATIENT
  Sex: Male

DRUGS (2)
  1. HUMIRA [Suspect]
     Indication: PSORIASIS
     Dates: start: 201304, end: 201306
  2. HUMIRA [Suspect]
     Route: 058

REACTIONS (2)
  - Tinea versicolour [Unknown]
  - Psoriasis [Unknown]
